FAERS Safety Report 21081463 (Version 1)
Quarter: 2022Q3

REPORT INFORMATION
  Report Type: Spontaneous
  Country: CN (occurrence: CN)
  Receive Date: 20220714
  Receipt Date: 20220714
  Transmission Date: 20221027
  Serious: Yes (Other)
  Sender: FDA-Public Use
  Company Number: None

PATIENT
  Age: 66 Year
  Sex: Female
  Weight: 60 kg

DRUGS (5)
  1. CYCLOPHOSPHAMIDE [Suspect]
     Active Substance: CYCLOPHOSPHAMIDE
     Indication: Breast cancer female
     Dosage: FIRST CHEMOTHERAPY, CYCLOPHOSPHAMIDE (850 MG) + SODIUM CHLORIDE (45ML)
     Route: 042
     Dates: start: 20220408, end: 20220408
  2. SODIUM CHLORIDE [Suspect]
     Active Substance: SODIUM CHLORIDE
     Indication: Medication dilution
     Dosage: FIRST CHEMOTHERAPY, CYCLOPHOSPHAMIDE ( 850 MG) + SODIUM CHLORIDE (45ML)
     Route: 042
     Dates: start: 20220408, end: 20220408
  3. SODIUM CHLORIDE [Suspect]
     Active Substance: SODIUM CHLORIDE
     Dosage: FIRST CHEMOTHERAPY, DOCETAXEL INJECTION (TAXOTERE) (112) MG + SODIUM CHLORIDE (250ML)
     Route: 041
     Dates: start: 20220408, end: 20220408
  4. TAXOTERE [Suspect]
     Active Substance: DOCETAXEL
     Indication: Breast cancer female
     Dosage: FIRST CHEMOTHERAPY, DOCETAXEL INJECTION (TAXOTERE) (112) MG + SODIUM CHLORIDE (250ML)
     Route: 041
     Dates: start: 20220408, end: 20220408
  5. Jin you li [Concomitant]
     Indication: Product used for unknown indication
     Dosage: 6 MG ON SECOND DAY
     Route: 058
     Dates: start: 20220409

REACTIONS (2)
  - White blood cell count decreased [Recovered/Resolved]
  - Agranulocytosis [Recovered/Resolved]

NARRATIVE: CASE EVENT DATE: 20220414
